FAERS Safety Report 10040307 (Version 2)
Quarter: 2014Q1

REPORT INFORMATION
  Report Type: Spontaneous
  Country: DE (occurrence: DE)
  Receive Date: 20140327
  Receipt Date: 20140331
  Transmission Date: 20141002
  Serious: Yes (Other)
  Sender: FDA-Public Use
  Company Number: DE-B.I. PHARMACEUTICALS,INC./RIDGEFIELD-2014-BI-12854DE

PATIENT
  Age: 79 Year
  Sex: Male
  Weight: 69 kg

DRUGS (1)
  1. PRADAXA [Suspect]
     Indication: ATRIAL FIBRILLATION
     Dosage: 220 MG
     Route: 065
     Dates: start: 2012, end: 20140325

REACTIONS (3)
  - Colon cancer [Unknown]
  - Anal haemorrhage [Not Recovered/Not Resolved]
  - Haemorrhage [Unknown]
